FAERS Safety Report 6505907-7 (Version None)
Quarter: 2009Q4

REPORT INFORMATION
  Report Type: 
  Country: None (occurrence: None)
  Receive Date: 20091218
  Receipt Date: 20091207
  Transmission Date: 20100525
  Serious: Yes (Other)
  Sender: FDA-Public Use
  Company Number: BR-BAYER-200925087LA

PATIENT
  Age: 34 Year
  Sex: Female

DRUGS (5)
  1. BETAFERON [Suspect]
     Indication: RELAPSING-REMITTING MULTIPLE SCLEROSIS
     Dosage: BETAJECT
     Route: 058
     Dates: start: 20091024, end: 20090101
  2. BETAFERON [Suspect]
     Dosage: TOTAL DAILY DOSE: 8 MIU
     Route: 058
     Dates: start: 20091123
  3. CETOPROFENO [Concomitant]
     Indication: TORTICOLLIS
     Dosage: 2 TAB WITH SYMPTOM
     Route: 048
     Dates: start: 20091206
  4. DORFLEX [Concomitant]
     Indication: TORTICOLLIS
     Dosage: 2 TAB WITH SYMPTOM
     Route: 048
     Dates: start: 20091206
  5. GYNERA [Concomitant]
     Indication: CONTRACEPTION
     Route: 048
     Dates: start: 20070101

REACTIONS (2)
  - MUSCLE RIGIDITY [None]
  - VISUAL IMPAIRMENT [None]
